FAERS Safety Report 9361600 (Version 3)
Quarter: 2013Q3

REPORT INFORMATION
  Report Type: Spontaneous
  Country: US (occurrence: US)
  Receive Date: 20130621
  Receipt Date: 20130808
  Transmission Date: 20140515
  Serious: No
  Sender: FDA-Public Use
  Company Number: US-PFIZER INC-2013185035

PATIENT
  Age: 64 Year
  Sex: Male

DRUGS (4)
  1. SUTENT [Suspect]
     Indication: NEOPLASM MALIGNANT
     Dosage: 37.5 MG (25 MG AND 12.5 MG) QD, CYCLIC X 14 DAYS ON 7 DAYS OFF
     Route: 048
     Dates: start: 20110309
  2. LOSARTAN [Concomitant]
     Dosage: UNK
  3. HYDROCHLOROTHIAZIDE [Concomitant]
     Dosage: UNK
  4. GABAPENTIN [Concomitant]
     Dosage: UNK

REACTIONS (3)
  - Eructation [Unknown]
  - Flatulence [Unknown]
  - Diarrhoea [Unknown]
